FAERS Safety Report 9729539 (Version 3)
Quarter: 2015Q3

REPORT INFORMATION
  Report Type: Spontaneous
  Country: US (occurrence: US)
  Receive Date: 20131204
  Receipt Date: 20150804
  Transmission Date: 20151125
  Serious: No
  Sender: FDA-Public Use
  Company Number: US-GILEAD-2009-0021143

PATIENT
  Age: 80 Year
  Sex: Male
  Weight: 126.1 kg

DRUGS (15)
  1. DIURIL [Concomitant]
     Active Substance: CHLOROTHIAZIDE
  2. LETAIRIS [Suspect]
     Active Substance: AMBRISENTAN
     Indication: PULMONARY ARTERIAL HYPERTENSION
     Route: 048
     Dates: start: 20090120
  3. CARDIZEM CD [Concomitant]
     Active Substance: DILTIAZEM HYDROCHLORIDE
  4. ZOCOR [Concomitant]
     Active Substance: SIMVASTATIN
  5. BUMEX [Concomitant]
     Active Substance: BUMETANIDE
  6. MULTIVITAMIN [Concomitant]
     Active Substance: VITAMINS
  7. POTASSIUM CHLORIDE. [Concomitant]
     Active Substance: POTASSIUM CHLORIDE
  8. RAMIPRIL. [Concomitant]
     Active Substance: RAMIPRIL
  9. LANTUS [Concomitant]
     Active Substance: INSULIN GLARGINE
  10. ESTER-C [Concomitant]
     Active Substance: CALCIUM\VITAMINS
  11. ALLOPURINOL. [Concomitant]
     Active Substance: ALLOPURINOL
  12. COUMADIN [Concomitant]
     Active Substance: WARFARIN SODIUM
  13. LANOXIN [Concomitant]
     Active Substance: DIGOXIN
  14. PEPCID [Concomitant]
     Active Substance: FAMOTIDINE
  15. COQ10 [Concomitant]
     Active Substance: UBIDECARENONE

REACTIONS (2)
  - Pruritus [Unknown]
  - Hypersensitivity [Unknown]
